FAERS Safety Report 8874753 (Version 1)
Quarter: 2012Q4

REPORT INFORMATION
  Report Type: 
  Country: MX (occurrence: MX)
  Receive Date: 20121030
  Receipt Date: 20121030
  Transmission Date: 20130627
  Serious: Yes (Hospitalization)
  Sender: FDA-Public Use
  Company Number: MX-ABBOTT-12P-107-0975446-00

PATIENT
  Age: 45 Year
  Sex: Female
  Weight: 66 kg

DRUGS (8)
  1. HUMIRA 40 MG/ 0.8 ML PRE-FILLED SYRINGE [Suspect]
     Indication: SJOGREN^S SYNDROME
     Route: 058
     Dates: start: 20110118
  2. HUMIRA 40 MG/ 0.8 ML PRE-FILLED SYRINGE [Suspect]
     Route: 058
     Dates: start: 201208
  3. PLAQUENIL [Concomitant]
     Indication: RHEUMATOID ARTHRITIS
     Route: 048
     Dates: start: 2004
  4. EUTIROX [Concomitant]
     Indication: THYROID DISORDER
     Dosage: 1 to 1 1/4 tab a day
     Route: 048
     Dates: start: 2000
  5. METICORTEN [Concomitant]
     Indication: ADRENAL DISORDER
     Route: 048
     Dates: start: 1992
  6. NIDESEF [Concomitant]
     Indication: ARTHRALGIA
     Route: 048
     Dates: start: 201206
  7. CYMBALTA [Concomitant]
     Indication: FIBROMYALGIA
     Route: 048
     Dates: start: 2011
  8. CALCIBAL [Concomitant]
     Indication: MINERAL SUPPLEMENTATION
     Route: 048
     Dates: start: 2011

REACTIONS (5)
  - Spinal operation [Recovered/Resolved]
  - Gingival recession [Recovered/Resolved]
  - Mouth haemorrhage [Recovered/Resolved]
  - Nausea [Unknown]
  - Oral disorder [Unknown]
